FAERS Safety Report 20001664 (Version 1)
Quarter: 2021Q4

REPORT INFORMATION
  Report Type: Spontaneous
  Country: CA (occurrence: CA)
  Receive Date: 20211027
  Receipt Date: 20211027
  Transmission Date: 20220303
  Serious: Yes (Other)
  Sender: FDA-Public Use
  Company Number: CA-SA-SAC20211021000946

PATIENT
  Age: 43 Year
  Sex: Female

DRUGS (23)
  1. DESOXIMETASONE [Suspect]
     Active Substance: DESOXIMETASONE
     Indication: Product used for unknown indication
     Dosage: (1 IN 12 HR)
  2. TRETINOIN [Suspect]
     Active Substance: TRETINOIN
     Indication: Product used for unknown indication
     Dosage: TREATMENT DURATION: 361 DAYS
  3. ATOMOXETINE HYDROCHLORIDE [Suspect]
     Active Substance: ATOMOXETINE HYDROCHLORIDE
  4. FLUTICASONE FUROATE [Suspect]
     Active Substance: FLUTICASONE FUROATE
     Dosage: THERAPY STOPPED: 421 DAYS
  5. BETAMETHASONE VALERATE [Suspect]
     Active Substance: BETAMETHASONE VALERATE
     Indication: Product used for unknown indication
     Dosage: THERAPY STOPPED 361 DAYS
  6. BOTULINUM TOXIN TYPE A [Suspect]
     Active Substance: BOTULINUM TOXIN TYPE A
     Indication: Product used for unknown indication
  7. BUPRENORPHINE [Suspect]
     Active Substance: BUPRENORPHINE
     Dosage: STOPPED 91 DAYS
  8. CYCLOBENZAPRINE HYDROCHLORIDE [Suspect]
     Active Substance: CYCLOBENZAPRINE HYDROCHLORIDE
     Indication: Product used for unknown indication
     Dosage: STOPPED 421 DAYS
  9. ERENUMAB [Suspect]
     Active Substance: ERENUMAB
     Indication: Migraine
  10. FETZIMA [Suspect]
     Active Substance: LEVOMILNACIPRAN HYDROCHLORIDE
     Indication: Product used for unknown indication
     Dosage: STOPPED 391 DAYS
  11. FINACEA [Suspect]
     Active Substance: AZELAIC ACID
     Indication: Product used for unknown indication
     Dosage: STOPPED 361 DAYS
  12. HYDROMORPHONE HYDROCHLORIDE [Suspect]
     Active Substance: HYDROMORPHONE HYDROCHLORIDE
     Indication: Product used for unknown indication
     Dosage: STOPPED 121 DAYS
  13. LAMOTRIGINE [Suspect]
     Active Substance: LAMOTRIGINE
     Indication: Product used for unknown indication
     Dosage: 50 MG, BID
     Route: 048
  14. LAMOTRIGINE [Suspect]
     Active Substance: LAMOTRIGINE
     Dosage: 25 MG, BID
     Route: 048
  15. MYRBETRIQ [Suspect]
     Active Substance: MIRABEGRON
     Indication: Product used for unknown indication
     Dosage: 1 DF, QD
  16. NAPROXEN [Suspect]
     Active Substance: NAPROXEN
     Indication: Product used for unknown indication
     Dosage: 1 DF, BID (STOPPED: 92 DAYS)
  17. PANTOPRAZOLE SODIUM [Suspect]
     Active Substance: PANTOPRAZOLE SODIUM
     Indication: Product used for unknown indication
     Dosage: 1 DF, BID (STOPPED 421 DAYS
  18. RANITIDINE [Suspect]
     Active Substance: RANITIDINE
     Indication: Product used for unknown indication
     Dosage: STOPPED 421 DAYS
  19. TOPIRAMATE [Suspect]
     Active Substance: TOPIRAMATE
     Indication: Product used for unknown indication
  20. TRAZODONE HYDROCHLORIDE [Suspect]
     Active Substance: TRAZODONE HYDROCHLORIDE
     Dosage: STOPPED 121 DAYS
  21. CHOLECALCIFEROL [Suspect]
     Active Substance: CHOLECALCIFEROL
     Indication: Product used for unknown indication
     Dosage: STOPPED 421 DAYS
  22. CETIRIZINE HYDROCHLORIDE\PSEUDOEPHEDRINE HYDROCHLORIDE [Suspect]
     Active Substance: CETIRIZINE HYDROCHLORIDE\PSEUDOEPHEDRINE HYDROCHLORIDE
  23. ACETAMINOPHEN\DOMPERIDONE [Suspect]
     Active Substance: ACETAMINOPHEN\DOMPERIDONE
     Dosage: 1 DF, Q8H

REACTIONS (14)
  - Abdominal pain upper [Unknown]
  - Blepharospasm [Unknown]
  - Drug intolerance [Unknown]
  - Epilepsy [Unknown]
  - Gastrooesophageal reflux disease [Unknown]
  - Hypoaesthesia [Unknown]
  - Memory impairment [Unknown]
  - Migraine [Unknown]
  - Pain [Unknown]
  - Paraesthesia [Unknown]
  - Taste disorder [Unknown]
  - Vomiting [Unknown]
  - Drug ineffective [Unknown]
  - Product use in unapproved indication [Unknown]
